FAERS Safety Report 6679767-8 (Version None)
Quarter: 2010Q2

REPORT INFORMATION
  Report Type: 
  Country: None (occurrence: None)
  Receive Date: 20100413
  Receipt Date: 20091230
  Transmission Date: 20101027
  Serious: No
  Sender: FDA-Public Use
  Company Number: US-ASTRAZENECA-2009SE34028

PATIENT
  Age: 72 Year
  Sex: Female
  Weight: 59.9 kg

DRUGS (8)
  1. TENORMIN [Suspect]
  2. ZICAM [Suspect]
  3. HYDROCHLOROTHIAZIDE [Concomitant]
  4. MEDROL [Concomitant]
  5. PLAQUENIL [Concomitant]
  6. BONIVA [Concomitant]
  7. MULTI-VITAMIN [Concomitant]
  8. CALCIUM [Concomitant]

REACTIONS (1)
  - AGEUSIA [None]
